FAERS Safety Report 7207845-3 (Version None)
Quarter: 2010Q4

REPORT INFORMATION
  Report Type: 
  Country: None (occurrence: None)
  Receive Date: 20101221
  Receipt Date: 20101206
  Transmission Date: 20110411
  Serious: Yes (Life-Threatening)
  Sender: FDA-Public Use
  Company Number: 2010005406

PATIENT
  Age: 72 Year
  Sex: Male
  Weight: 46 kg

DRUGS (13)
  1. TARCEVA [Suspect]
     Indication: LUNG SQUAMOUS CELL CARCINOMA STAGE UNSPECIFIED
     Dosage: (150 MG, 150 MG 1 X PER 1 DAY), ORAL
     Route: 048
     Dates: start: 20090917, end: 20091104
  2. MUCOTRON (CARBOCISTEINE) [Concomitant]
  3. MUCOSOLVAN (AMBROXOL HYDROCHLORIDE) [Concomitant]
  4. LOXONIN (LOXOPROFEN SODIUM) [Concomitant]
  5. METHYLCOBAL (MECOBALAMIN) [Concomitant]
  6. PREDNISOLONE [Concomitant]
  7. DECADRON [Concomitant]
  8. CODEINE PHOSPHATE (CODEINE PHOSPHATE) [Concomitant]
  9. URSODIOL [Concomitant]
  10. MUCOSTA (REBAMIPIDE) [Concomitant]
  11. BIOFERMIN (BIOFERMIN) [Concomitant]
  12. PRIMAXIN [Concomitant]
  13. FAMOTIDINE [Concomitant]

REACTIONS (4)
  - CONDITION AGGRAVATED [None]
  - HAEMOPTYSIS [None]
  - NON-SMALL CELL LUNG CANCER [None]
  - PNEUMONIA [None]
